FAERS Safety Report 8524950-X (Version None)
Quarter: 2012Q3

REPORT INFORMATION
  Report Type: 
  Country: None (occurrence: None)
  Receive Date: 20120720
  Receipt Date: 20120713
  Transmission Date: 20120928
  Serious: Yes (Hospitalization, Disabling, Other)
  Sender: FDA-Public Use
  Company Number: US-009507513-1112USA02858

PATIENT

DRUGS (16)
  1. FOSAMAX [Suspect]
     Dosage: 70 MG, QW
     Route: 048
     Dates: start: 20100902
  2. CARTIA XT [Concomitant]
     Indication: HYPERTENSION
     Dosage: 180 MG, UNK
     Dates: start: 19870101
  3. FOSAMAX [Suspect]
     Indication: OSTEOPENIA
     Dosage: 70 MG, QW
     Route: 048
     Dates: start: 20070102, end: 20080311
  4. MK-0152 [Concomitant]
     Indication: HYPERTENSION
     Dosage: 25 MG, UNK
     Dates: start: 20020101
  5. FOSAMAX [Suspect]
  6. FOSAMAX [Suspect]
  7. FOSAMAX PLUS D [Suspect]
     Indication: OSTEOPENIA
  8. FOSAMAX [Suspect]
     Dosage: UNK UNK, QD
     Route: 048
  9. CALCIUM (UNSPECIFIED) [Concomitant]
     Dosage: 1200 MG, QD
  10. POTASSIUM CHLORIDE [Concomitant]
     Indication: HYPERTENSION
     Dosage: 20 MG, UNK
     Dates: start: 20020101
  11. FOSAMAX PLUS D [Suspect]
     Indication: OSTEOPOROSIS
     Route: 048
     Dates: start: 20060112, end: 20060405
  12. VITAMIN D (UNSPECIFIED) [Concomitant]
     Dosage: 1000 MG, QD
  13. ZEBETA [Concomitant]
     Indication: HYPERTENSION
     Dosage: 24 MG, UNK
     Dates: start: 20070101
  14. FOSAMAX [Suspect]
     Indication: OSTEOPOROSIS
     Dosage: 70 MG, QW
     Route: 048
     Dates: start: 19990101, end: 20051215
  15. FOSAMAX [Suspect]
     Dosage: 70 MG, QW
     Route: 048
     Dates: start: 20080414, end: 20100910
  16. ASCORBIC ACID [Concomitant]
     Dosage: 500 MG, QD

REACTIONS (36)
  - LOW TURNOVER OSTEOPATHY [None]
  - HAND FRACTURE [None]
  - ARTHRITIS [None]
  - IRRITABLE BOWEL SYNDROME [None]
  - SPONDYLOLISTHESIS [None]
  - NEUROPATHY PERIPHERAL [None]
  - HAEMORRHOIDS [None]
  - FOOT DEFORMITY [None]
  - CARDIOMEGALY [None]
  - HYPERLIPIDAEMIA [None]
  - DRUG ABUSE [None]
  - MONARTHRITIS [None]
  - PUBIS FRACTURE [None]
  - DIARRHOEA [None]
  - FRACTURE NONUNION [None]
  - RECTAL HAEMORRHAGE [None]
  - OSTEOARTHRITIS [None]
  - LIGAMENT SPRAIN [None]
  - CHOLELITHIASIS [None]
  - SPINAL OSTEOARTHRITIS [None]
  - FEMUR FRACTURE [None]
  - ANGINA PECTORIS [None]
  - BLOOD DISORDER [None]
  - HYPERADRENALISM [None]
  - FALL [None]
  - COLONIC POLYP [None]
  - TOOTH DISORDER [None]
  - RENAL CYST [None]
  - ANAEMIA POSTOPERATIVE [None]
  - URINARY TRACT INFECTION [None]
  - ROTATOR CUFF SYNDROME [None]
  - INTERVERTEBRAL DISC PROTRUSION [None]
  - LYMPHADENOPATHY [None]
  - PERICARDIAL EFFUSION [None]
  - LUNG NEOPLASM [None]
  - AORTIC ARTERIOSCLEROSIS [None]
